FAERS Safety Report 5010745-0 (Version None)
Quarter: 2006Q2

REPORT INFORMATION
  Report Type: 
  Country: None (occurrence: None)
  Receive Date: 20060525
  Receipt Date: 20060412
  Transmission Date: 20061013
  Serious: Yes (Hospitalization)
  Sender: FDA-Public Use
  Company Number: DE-AMGEN-UK176152

PATIENT
  Sex: Female

DRUGS (4)
  1. ARANESP [Suspect]
     Indication: ANAEMIA OF MALIGNANT DISEASE
     Route: 058
     Dates: start: 20050824, end: 20051005
  2. TAXOTERE [Suspect]
     Route: 042
     Dates: start: 20051005
  3. ADRIAMYCIN PFS [Suspect]
     Route: 042
     Dates: start: 20051005
  4. CYCLOPHOSPHAMIDE [Suspect]
     Route: 042
     Dates: start: 20051005

REACTIONS (5)
  - AXILLARY VEIN THROMBOSIS [None]
  - CATHETER SITE RELATED REACTION [None]
  - PAGET-SCHROETTER SYNDROME [None]
  - SWELLING [None]
  - THYROID DISORDER [None]
